FAERS Safety Report 7879812-8 (Version None)
Quarter: 2011Q4

REPORT INFORMATION
  Report Type: 
  Country: None (occurrence: None)
  Receive Date: 20111101
  Receipt Date: 20111021
  Transmission Date: 20120403
  Serious: Yes (Other)
  Sender: FDA-Public Use
  Company Number: US-US-EMD SERONO, INC.-7091430

PATIENT
  Sex: Female

DRUGS (1)
  1. REBIF [Suspect]
     Indication: PRODUCT USED FOR UNKNOWN INDICATION
     Route: 058
     Dates: start: 20100506

REACTIONS (5)
  - CENTRAL NERVOUS SYSTEM LESION [None]
  - HEADACHE [None]
  - VISUAL FIELD DEFECT [None]
  - MEMORY IMPAIRMENT [None]
  - INJECTION SITE ERYTHEMA [None]
